FAERS Safety Report 8333253-8 (Version None)
Quarter: 2012Q2

REPORT INFORMATION
  Report Type: 
  Country: None (occurrence: None)
  Receive Date: 20120503
  Receipt Date: 20120425
  Transmission Date: 20120825
  Serious: Yes (Death, Life-Threatening, Hospitalization, Other)
  Sender: FDA-Public Use
  Company Number: FR-PFIZER INC-2012080524

PATIENT
  Age: 78 Year
  Sex: Male

DRUGS (15)
  1. VENTOLIN [Concomitant]
  2. LASIX [Concomitant]
     Dosage: UNK
  3. SPIRIVA [Concomitant]
     Indication: CHRONIC OBSTRUCTIVE PULMONARY DISEASE
     Dosage: UNK
  4. SINGULAIR [Concomitant]
     Indication: CHRONIC OBSTRUCTIVE PULMONARY DISEASE
     Dosage: UNK
  5. RAMIPRIL [Concomitant]
     Indication: HYPERTENSION
     Dosage: UNK
  6. FUROSEMIDE [Concomitant]
     Indication: HYPERTENSION
     Dosage: UNK
  7. FLUTICASONE PROPIONATE/SALMETEROL [Concomitant]
     Indication: CHRONIC OBSTRUCTIVE PULMONARY DISEASE
     Dosage: UNK
  8. CORDARONE [Suspect]
     Indication: ATRIAL FIBRILLATION
     Dosage: 200 MG, 3 TABLETS, DAILY
     Route: 048
     Dates: start: 20120305, end: 20120305
  9. CORDARONE [Suspect]
     Dosage: 200 MG, 2 TABLETS, DAILY
     Route: 048
     Dates: start: 20120306, end: 20120308
  10. LASIX [Concomitant]
     Dosage: 40 MG, 2.5 TABLETS,
     Dates: start: 20120306, end: 20120310
  11. FUROSEMIDE [Concomitant]
     Dosage: ONE INFUSION OF 60 MG
     Route: 042
     Dates: start: 20120303, end: 20120303
  12. COUMADIN [Suspect]
     Indication: ATRIAL FIBRILLATION
     Dosage: 2 DF, DAILY
     Route: 048
     Dates: start: 20120305
  13. LASIX [Concomitant]
     Dosage: 1 DF, DAILY
     Dates: start: 20120303, end: 20120303
  14. LASIX [Concomitant]
     Dosage: 40 MG, 3 TABLETS, DAILY
     Dates: start: 20120304, end: 20120305
  15. FUROSEMIDE [Concomitant]
     Dosage: 1060 MG DAILY
     Route: 042
     Dates: start: 20120311

REACTIONS (4)
  - CARDIAC FAILURE CHRONIC [None]
  - CYTOLYTIC HEPATITIS [None]
  - CHOLESTASIS [None]
  - SEPSIS [None]
